FAERS Safety Report 9168210 (Version 4)
Quarter: 2013Q3

REPORT INFORMATION
  Report Type: Spontaneous
  Country: DE (occurrence: DE)
  Receive Date: 20130318
  Receipt Date: 20130725
  Transmission Date: 20140515
  Serious: Yes (Hospitalization, Other)
  Sender: FDA-Public Use
  Company Number: DE-AMGEN-DEUSP2013018648

PATIENT
  Age: 20 Year
  Sex: Female

DRUGS (2)
  1. ENBREL [Suspect]
     Indication: PSORIATIC ARTHROPATHY
     Dosage: 50 MG, WEEKLY
     Route: 058
     Dates: start: 20120416, end: 20121001
  2. CORTISON [Concomitant]
     Dosage: UNK

REACTIONS (3)
  - White blood cell count abnormal [Unknown]
  - Collagen disorder [Not Recovered/Not Resolved]
  - Borrelia infection [Not Recovered/Not Resolved]
